FAERS Safety Report 8920623 (Version 3)
Quarter: 2013Q3

REPORT INFORMATION
  Report Type: Spontaneous
  Country: US (occurrence: US)
  Receive Date: 20121122
  Receipt Date: 20130702
  Transmission Date: 20140515
  Serious: Yes (Other)
  Sender: FDA-Public Use
  Company Number: CHPA2012US023769

PATIENT
  Age: 68 Year
  Sex: Female

DRUGS (1)
  1. VOLTAREN GEL [Suspect]
     Indication: BONE CANCER
     Dosage: UNK, PRN
     Route: 061
     Dates: start: 201210

REACTIONS (3)
  - Neoplasm [Not Recovered/Not Resolved]
  - Off label use [Unknown]
  - Drug administered at inappropriate site [Unknown]
